FAERS Safety Report 8612966-4 (Version None)
Quarter: 2012Q3

REPORT INFORMATION
  Report Type: 
  Country: None (occurrence: None)
  Receive Date: 20120822
  Receipt Date: 20120821
  Transmission Date: 20120928
  Serious: Yes (Death)
  Sender: FDA-Public Use
  Company Number: CHPA2012US018603

PATIENT
  Sex: Male

DRUGS (1)
  1. MAALOX MS TOTAL STOMACH RELIEF [Suspect]
     Dosage: 1 DF, PRN
     Route: 048

REACTIONS (1)
  - COLON CANCER [None]
